FAERS Safety Report 5513909-2 (Version None)
Quarter: 2007Q4

REPORT INFORMATION
  Report Type: 
  Country: None (occurrence: None)
  Receive Date: 20071113
  Receipt Date: 20071105
  Transmission Date: 20080405
  Serious: Yes (Other)
  Sender: FDA-Public Use
  Company Number: CA-JNJFOC-20071102671

PATIENT
  Sex: Male

DRUGS (1)
  1. TYLENOL [Suspect]
     Indication: NASOPHARYNGITIS
     Route: 048

REACTIONS (1)
  - DERMATITIS ALLERGIC [None]
